FAERS Safety Report 8295412-2 (Version None)
Quarter: 2012Q2

REPORT INFORMATION
  Report Type: 
  Country: None (occurrence: None)
  Receive Date: 20120418
  Receipt Date: 20120412
  Transmission Date: 20120825
  Serious: Yes (Death, Hospitalization)
  Sender: FDA-Public Use
  Company Number: DE-ROCHE-1055925

PATIENT
  Sex: Female
  Weight: 65 kg

DRUGS (3)
  1. PACLITAXEL [Suspect]
     Indication: BREAST CANCER
     Dosage: LAST DOSE PRIOR TO SAE: 28/MAR/2012
     Route: 042
     Dates: start: 20120314
  2. NEULASTA [Concomitant]
     Dates: start: 20120329, end: 20120329
  3. XELODA [Suspect]
     Indication: BREAST CANCER
     Dosage: LAST DOSE PRIOR TO SAE: 27/MAR/2012
     Route: 048
     Dates: start: 20120314

REACTIONS (1)
  - FEBRILE NEUTROPENIA [None]
